FAERS Safety Report 4901303-4 (Version None)
Quarter: 2006Q1

REPORT INFORMATION
  Report Type: 
  Country: None (occurrence: None)
  Receive Date: 20060202
  Receipt Date: 20060120
  Transmission Date: 20060701
  Serious: Yes (Hospitalization)
  Sender: FDA-Public Use
  Company Number: A-US2006-11488

PATIENT
  Age: 79 Year
  Sex: Male

DRUGS (4)
  1. TRACLEER [Suspect]
     Indication: PULMONARY HYPERTENSION
     Dosage: 125 MG, BID, ORAL; 6235 MG, BID, ORAL
     Route: 048
     Dates: start: 20051001, end: 20051101
  2. TRACLEER [Suspect]
     Indication: PULMONARY HYPERTENSION
     Dosage: 125 MG, BID, ORAL; 6235 MG, BID, ORAL
     Route: 048
     Dates: start: 20051101
  3. LASIX [Concomitant]
  4. OXYGEN (OXYGEN) [Concomitant]

REACTIONS (3)
  - HEPATOTOXICITY [None]
  - SWELLING [None]
  - WEIGHT INCREASED [None]
